FAERS Safety Report 9989848 (Version 1)
Quarter: 2013Q4

REPORT INFORMATION
  Report Type: Spontaneous
  Country: IT (occurrence: None)
  Receive Date: 20131113
  Receipt Date: 20131113
  Transmission Date: 20140711
  Serious: Yes (Hospitalization)
  Sender: FDA-Public Use
  Company Number: B0933279A

PATIENT
  Age: 6 Year
  Sex: Male

DRUGS (2)
  1. BOOSTRIX INJECTION [Suspect]
     Indication: PROPHYLAXIS
  2. VENTOLIN [Suspect]
     Indication: PROPHYLAXIS

REACTIONS (6)
  - Stevens-Johnson syndrome [None]
  - Respiratory tract infection [None]
  - Dyspnoea [None]
  - Bronchitis [None]
  - General physical health deterioration [None]
  - Thrombophlebitis [None]
